FAERS Safety Report 7249023-8 (Version None)
Quarter: 2011Q1

REPORT INFORMATION
  Report Type: 
  Country: None (occurrence: None)
  Receive Date: 20110128
  Receipt Date: 20101001
  Transmission Date: 20110831
  Serious: Yes (Other)
  Sender: FDA-Public Use
  Company Number: JP-BRISTOL-MYERS SQUIBB COMPANY-15046550

PATIENT
  Age: 32 Year
  Sex: Female
  Weight: 62 kg

DRUGS (1)
  1. ABILIFY [Suspect]
     Indication: SCHIZOPHRENIA
     Dosage: DIS+RESTRT 6MG:21FB8-5MR8-19MR9-29JL9:10SP9-25SP9 9MG:12JUN8-18MR9 12MG:06MR8-11JUN8:26SP10-ONG
     Route: 048
     Dates: start: 20080221

REACTIONS (3)
  - NORMAL NEWBORN [None]
  - PREGNANCY [None]
  - THREATENED LABOUR [None]
